FAERS Safety Report 4387500-8 (Version None)
Quarter: 2004Q2

REPORT INFORMATION
  Report Type: 
  Country: None (occurrence: None)
  Receive Date: 20040630
  Receipt Date: 20040429
  Transmission Date: 20050107
  Serious: No
  Sender: FDA-Public Use
  Company Number: US-GLAXOSMITHKLINE-A0508958A

PATIENT

DRUGS (4)
  1. ADVAIR HFA [Suspect]
     Dosage: 1PUFF TWICE PER DAY
     Route: 055
     Dates: start: 20030101
  2. ACIPHEX [Concomitant]
  3. MAXZIDE [Concomitant]
  4. ALBUTEROL [Concomitant]

REACTIONS (1)
  - DYSPNOEA [None]
